FAERS Safety Report 17124321 (Version 3)
Quarter: 2020Q1

REPORT INFORMATION
  Report Type: Spontaneous
  Country: JP (occurrence: JP)
  Receive Date: 20191206
  Receipt Date: 20200221
  Transmission Date: 20200409
  Serious: Yes (Other)
  Sender: FDA-Public Use
  Company Number: JP-JNJFOC-20191200334

PATIENT
  Age: 73 Year
  Sex: Male

DRUGS (8)
  1. LORATADINE. [Interacting]
     Active Substance: LORATADINE
     Dosage: UNKNOWN
     Route: 048
  2. RUPATADINE FUMARATE [Interacting]
     Active Substance: RUPATADINE FUMARATE
     Indication: PRURITUS
     Route: 048
     Dates: end: 20190623
  3. REMINYL [Interacting]
     Active Substance: GALANTAMINE
     Route: 048
     Dates: start: 2019
  4. RUPATADINE FUMARATE [Interacting]
     Active Substance: RUPATADINE FUMARATE
     Indication: PRURITUS
     Dosage: UNKNOWN
     Route: 048
     Dates: start: 2019
  5. REMINYL [Interacting]
     Active Substance: GALANTAMINE
     Route: 048
     Dates: start: 20170201, end: 20190623
  6. REMINYL [Interacting]
     Active Substance: GALANTAMINE
     Dosage: UNKNOWN
     Route: 048
  7. LORATADINE. [Interacting]
     Active Substance: LORATADINE
     Indication: PRURITUS
     Route: 048
     Dates: end: 20190623
  8. REMINYL [Suspect]
     Active Substance: GALANTAMINE
     Indication: DEMENTIA WITH LEWY BODIES
     Route: 048

REACTIONS (2)
  - Drug interaction [Unknown]
  - Dyskinesia [Recovered/Resolved]

NARRATIVE: CASE EVENT DATE: 20190623
